FAERS Safety Report 10473976 (Version 2)
Quarter: 2014Q4

REPORT INFORMATION
  Report Type: Spontaneous
  Country: US (occurrence: US)
  Receive Date: 20140924
  Receipt Date: 20141111
  Transmission Date: 20150528
  Serious: Yes (Hospitalization, Other)
  Sender: FDA-Public Use
  Company Number: US-GLAXOSMITHKLINE-A1001324A

PATIENT
  Sex: Male

DRUGS (29)
  1. LYRICA [Concomitant]
     Active Substance: PREGABALIN
  2. ACETAMINOPHEN. [Concomitant]
     Active Substance: ACETAMINOPHEN
  3. ZETIA [Concomitant]
     Active Substance: EZETIMIBE
  4. FLEXERIL [Concomitant]
     Active Substance: CYCLOBENZAPRINE HYDROCHLORIDE
  5. ADVIL [Concomitant]
     Active Substance: IBUPROFEN
  6. METHOCARBAMOL. [Concomitant]
     Active Substance: METHOCARBAMOL
  7. METFORMIN [Concomitant]
     Active Substance: METFORMIN HYDROCHLORIDE
  8. ADVAIR HFA [Suspect]
     Active Substance: FLUTICASONE PROPIONATE\SALMETEROL XINAFOATE
     Dosage: 1 PUFF(S), BID
  9. GLIPIZIDE. [Concomitant]
     Active Substance: GLIPIZIDE
  10. JANUMET [Concomitant]
     Active Substance: METFORMIN HYDROCHLORIDE\SITAGLIPTIN PHOSPHATE
  11. RAMIPRIL. [Concomitant]
     Active Substance: RAMIPRIL
  12. ADVAIR HFA [Suspect]
     Active Substance: FLUTICASONE PROPIONATE\SALMETEROL XINAFOATE
     Indication: ASTHMA
     Dosage: 250/50 PUFF TWICE A DAY
     Route: 055
     Dates: start: 2000
  13. BYSTOLIC [Concomitant]
     Active Substance: NEBIVOLOL HYDROCHLORIDE
  14. ADVAIR HFA [Suspect]
     Active Substance: FLUTICASONE PROPIONATE\SALMETEROL XINAFOATE
     Dosage: 2 PUFF(S), Z
  15. NORCO [Concomitant]
     Active Substance: ACETAMINOPHEN\HYDROCODONE BITARTRATE
  16. LIPITOR [Concomitant]
     Active Substance: ATORVASTATIN CALCIUM
  17. VICODIN [Concomitant]
     Active Substance: ACETAMINOPHEN\HYDROCODONE BITARTRATE
  18. OMEPRAZOLE. [Concomitant]
     Active Substance: OMEPRAZOLE
  19. METOPROLOL [Concomitant]
     Active Substance: METOPROLOL
  20. PLAVIX [Concomitant]
     Active Substance: CLOPIDOGREL BISULFATE
  21. ENTERA [Concomitant]
  22. PRILOSEC [Concomitant]
     Active Substance: OMEPRAZOLE MAGNESIUM
  23. NEULASTA [Concomitant]
     Active Substance: PEGFILGRASTIM
  24. LEVEMIR [Concomitant]
     Active Substance: INSULIN DETEMIR
  25. ASPIRIN. [Concomitant]
     Active Substance: ASPIRIN
  26. VITAMIN D [Concomitant]
     Active Substance: CHOLECALCIFEROL
  27. LANTUS [Concomitant]
     Active Substance: INSULIN GLARGINE
  28. PLAVIX [Concomitant]
     Active Substance: CLOPIDOGREL BISULFATE
  29. ANTARA [Concomitant]
     Active Substance: FENOFIBRATE

REACTIONS (18)
  - Hospitalisation [Unknown]
  - Skin discolouration [Unknown]
  - Cardiac failure [Unknown]
  - Arterial rupture [Recovered/Resolved]
  - Therapy cessation [Unknown]
  - Coronary artery bypass [Unknown]
  - Internal haemorrhage [Recovered/Resolved]
  - Tongue disorder [Recovered/Resolved]
  - Poor peripheral circulation [Unknown]
  - Renal cancer [Unknown]
  - Drug administration error [Unknown]
  - Abasia [Unknown]
  - Swollen tongue [Recovered/Resolved]
  - Overdose [Recovered/Resolved]
  - Stent placement [Unknown]
  - Limb discomfort [Unknown]
  - Dyspnoea [Not Recovered/Not Resolved]
  - Surgery [Unknown]

NARRATIVE: CASE EVENT DATE: 2009
